FAERS Safety Report 23270695 (Version 1)
Quarter: 2023Q4

REPORT INFORMATION
  Report Type: Spontaneous
  Country: US (occurrence: US)
  Receive Date: 20231207
  Receipt Date: 20231207
  Transmission Date: 20240110
  Serious: Yes (Hospitalization, Other)
  Sender: FDA-Public Use
  Company Number: US-SA-2023SA377345

PATIENT
  Age: 32 Year
  Sex: Female
  Weight: 86 kg

DRUGS (5)
  1. DUPIXENT [Suspect]
     Active Substance: DUPILUMAB
     Indication: Dermatitis atopic
     Dosage: 600 MG, 1X
     Route: 058
     Dates: start: 20230808, end: 20230808
  2. DUPIXENT [Suspect]
     Active Substance: DUPILUMAB
     Dosage: 300 MG, QOW
     Route: 058
     Dates: start: 20230822, end: 20231030
  3. AMLODIPINE [Concomitant]
     Active Substance: AMLODIPINE BESYLATE
     Indication: Hypertension
     Dosage: 10 MG, QD
     Dates: start: 202303
  4. EUCERIN [UREA] [Concomitant]
     Dosage: UNK
  5. ACRIVASTINE [Concomitant]
     Active Substance: ACRIVASTINE
     Indication: Insomnia
     Dosage: 25 MG, QD
     Dates: start: 20230823

REACTIONS (18)
  - Pneumonia [Recovered/Resolved]
  - Productive cough [Unknown]
  - Sepsis [Recovered/Resolved]
  - Acute kidney injury [Unknown]
  - Hypotension [Unknown]
  - Haemoptysis [Unknown]
  - Chills [Unknown]
  - Pyrexia [Unknown]
  - Pain [Unknown]
  - Fatigue [Unknown]
  - Nausea [Unknown]
  - Decreased appetite [Unknown]
  - Change of bowel habit [Unknown]
  - Urinary tract infection [Unknown]
  - Pollakiuria [Unknown]
  - Dysuria [Unknown]
  - Myalgia [Unknown]
  - Oropharyngeal pain [Unknown]

NARRATIVE: CASE EVENT DATE: 20230101
